FAERS Safety Report 8597775-7 (Version None)
Quarter: 2012Q3

REPORT INFORMATION
  Report Type: 
  Country: None (occurrence: None)
  Receive Date: 20120816
  Receipt Date: 20120813
  Transmission Date: 20120928
  Serious: Yes (Other)
  Sender: FDA-Public Use
  Company Number: PHHY2012CA059742

PATIENT
  Sex: Female

DRUGS (2)
  1. ZOLEDRONOC ACID [Suspect]
     Indication: OSTEOPOROSIS
     Dosage: UNK
     Route: 042
     Dates: start: 20100913
  2. ZOLEDRONOC ACID [Suspect]
     Route: 042
     Dates: start: 20110921

REACTIONS (2)
  - INFECTION [None]
  - HYDROCEPHALUS [None]
